FAERS Safety Report 18512543 (Version 3)
Quarter: 2020Q4

REPORT INFORMATION
  Report Type: Spontaneous
  Country: DE (occurrence: DE)
  Receive Date: 20201117
  Receipt Date: 20201217
  Transmission Date: 20210114
  Serious: Yes (Other)
  Sender: FDA-Public Use
  Company Number: DE-AKCEA THERAPEUTICS-2020IS001576

PATIENT
  Age: 84 Year
  Sex: Male

DRUGS (2)
  1. ISSD (INTEGRATED SYRINGE SAFETY DEVICE) [Suspect]
     Active Substance: DEVICE
  2. TEGSEDI [Suspect]
     Active Substance: INOTERSEN SODIUM
     Indication: PRODUCT USED FOR UNKNOWN INDICATION
     Route: 065

REACTIONS (11)
  - Confusional state [Unknown]
  - Chills [Unknown]
  - Nausea [Unknown]
  - Feeling cold [Unknown]
  - Asthenia [Unknown]
  - Muscular weakness [Unknown]
  - Cardiac pacemaker insertion [Unknown]
  - Diarrhoea [Unknown]
  - Disorientation [Unknown]
  - Poor quality sleep [Unknown]
  - Tremor [Unknown]

NARRATIVE: CASE EVENT DATE: 20200917
